FAERS Safety Report 17730660 (Version 1)
Quarter: 2020Q2

REPORT INFORMATION
  Report Type: Spontaneous
  Country: DK (occurrence: DK)
  Receive Date: 20200430
  Receipt Date: 20200430
  Transmission Date: 20200714
  Serious: Yes (Hospitalization)
  Sender: FDA-Public Use
  Company Number: DK-JNJFOC-20200436735

PATIENT
  Age: 80 Year
  Sex: Male

DRUGS (9)
  1. BISOPROLOL ^STADA^ [Concomitant]
     Indication: CARDIAC DISORDER
     Dosage: 5 MG.
     Route: 048
     Dates: start: 20150128
  2. HEXALACTON [Concomitant]
     Indication: DIURETIC THERAPY
     Dosage: 25 MG.
     Route: 048
     Dates: start: 20181009
  3. SIMVASTATIN ^SANDOZ^ [Concomitant]
     Active Substance: SIMVASTATIN
     Indication: HYPERCHOLESTEROLAEMIA
     Route: 048
     Dates: start: 20131107
  4. DIGOXIN ^DAK^ [Concomitant]
     Active Substance: DIGOXIN
     Indication: ARRHYTHMIA
     Dosage: STYRKE: 62,5 MIKROGRAM
     Route: 048
     Dates: start: 20150508
  5. KALEORID [Concomitant]
     Active Substance: POTASSIUM CHLORIDE
     Indication: BLOOD POTASSIUM DECREASED
     Dosage: 750 MG
     Route: 048
     Dates: start: 20180912
  6. SERENASE (HALOPERIDOL) [Suspect]
     Active Substance: HALOPERIDOL
     Indication: WITHDRAWAL SYNDROME
     Dosage: 5 MG/ML
     Route: 042
     Dates: start: 20200415, end: 20200415
  7. METFORMIN [Concomitant]
     Active Substance: METFORMIN HYDROCHLORIDE
     Indication: DIABETES MELLITUS
     Dosage: 500 MG
     Route: 048
     Dates: start: 20150331
  8. MAREVAN [Concomitant]
     Active Substance: WARFARIN SODIUM
     Indication: ANTICOAGULANT THERAPY
     Dosage: 2.5 MG
     Route: 048
     Dates: start: 20150128
  9. FORMO EASYHALER [Concomitant]
     Indication: LUNG DISORDER
     Route: 055
     Dates: start: 20150602

REACTIONS (3)
  - Incorrect route of product administration [Unknown]
  - Off label use [Unknown]
  - Coma [Recovered/Resolved]

NARRATIVE: CASE EVENT DATE: 20200415
